FAERS Safety Report 8876521 (Version 1)
Quarter: 2012Q4

REPORT INFORMATION
  Report Type: 
  Country: US (occurrence: US)
  Receive Date: 20121023
  Receipt Date: 20121023
  Transmission Date: 20130627
  Serious: No
  Sender: FDA-Public Use
  Company Number: US-ASTELLAS-2012US004356

PATIENT
  Sex: Male

DRUGS (4)
  1. PROGRAF [Suspect]
     Indication: LIVER TRANSPLANT
     Dosage: UNK
     Route: 065
     Dates: start: 20110121, end: 201103
  2. LEVOTHYROXINE [Concomitant]
     Indication: HYPOTHYROIDISM
     Dosage: 188 ug, bid
     Route: 048
     Dates: start: 201011
  3. OMEPRAZOLE [Concomitant]
     Indication: GASTROOESOPHAGEAL REFLUX DISEASE
     Dosage: 20 mg, bid
     Route: 048
     Dates: start: 201011
  4. MAGNESIUM [Concomitant]
     Indication: MUSCLE SPASMS
     Dosage: 400 mg, bid
     Route: 048
     Dates: start: 201011

REACTIONS (1)
  - Hypersensitivity [Unknown]
